FAERS Safety Report 6537795-7 (Version None)
Quarter: 2010Q1

REPORT INFORMATION
  Report Type: 
  Country: None (occurrence: None)
  Receive Date: 20100114
  Receipt Date: 20100104
  Transmission Date: 20100710
  Serious: Yes (Hospitalization)
  Sender: FDA-Public Use
  Company Number: DE-PFIZER INC-2010000179

PATIENT
  Age: 78 Year
  Sex: Female
  Weight: 70 kg

DRUGS (15)
  1. AMPICILLIN AND SULBACTAM [Suspect]
     Indication: PNEUMONIA
     Dosage: 2 G, 2X/DAY
     Route: 042
     Dates: start: 20090612, end: 20090615
  2. FRAGMIN [Concomitant]
  3. PLAVIX [Concomitant]
  4. ASPIRIN [Concomitant]
  5. TORSEMIDE [Concomitant]
  6. ATACAND [Concomitant]
  7. PENTAERYTHRITOL TETRANITRATE [Concomitant]
  8. NEBILET [Concomitant]
  9. ACTRAPID [Concomitant]
  10. PROTAPHAN [Concomitant]
  11. VIGANTOLETTEN ^MERCK^ [Concomitant]
  12. RENAVIT [Concomitant]
  13. PANTOPRAZOLE [Concomitant]
  14. PARACETAMOL [Concomitant]
  15. CALCIUM ACETATE [Concomitant]

REACTIONS (1)
  - DRUG INEFFECTIVE [None]
